FAERS Safety Report 16825993 (Version 2)
Quarter: 2019Q4

REPORT INFORMATION
  Report Type: Spontaneous
  Country: US (occurrence: US)
  Receive Date: 20190919
  Receipt Date: 20191022
  Transmission Date: 20200122
  Serious: Yes (Other)
  Sender: FDA-Public Use
  Company Number: US-AMGEN-USASP2019150323

PATIENT
  Age: 47 Year
  Sex: Male

DRUGS (3)
  1. RIBAVIRIN. [Suspect]
     Active Substance: RIBAVIRIN
     Indication: PRODUCT USED FOR UNKNOWN INDICATION
     Dosage: UNK
     Route: 065
  2. NEUPOGEN [Suspect]
     Active Substance: FILGRASTIM
     Dosage: UNK (HALF OF AN INJECTION)
     Route: 065
     Dates: start: 2007, end: 200710
  3. NEUPOGEN [Suspect]
     Active Substance: FILGRASTIM
     Indication: WHITE BLOOD CELL COUNT DECREASED
     Dosage: UNK (ENTIRE INJECTION)
     Route: 065
     Dates: start: 2007, end: 2007

REACTIONS (6)
  - Hepatitis C [Not Recovered/Not Resolved]
  - Adverse drug reaction [Unknown]
  - Hepatic cancer [Not Recovered/Not Resolved]
  - Platelet count abnormal [Unknown]
  - Tooth disorder [Unknown]
  - Fatigue [Unknown]

NARRATIVE: CASE EVENT DATE: 2007
